FAERS Safety Report 7207686-7 (Version None)
Quarter: 2011Q1

REPORT INFORMATION
  Report Type: 
  Country: None (occurrence: None)
  Receive Date: 20110103
  Receipt Date: 20101230
  Transmission Date: 20110831
  Serious: Yes (Other)
  Sender: FDA-Public Use
  Company Number: US-PFIZER INC-2010182191

PATIENT
  Sex: Male

DRUGS (1)
  1. VIAGRA [Suspect]
     Dosage: UNK

REACTIONS (3)
  - THERAPEUTIC PROCEDURE [None]
  - GLUCOSE TOLERANCE IMPAIRED [None]
  - PROSTATIC SPECIFIC ANTIGEN DECREASED [None]
